FAERS Safety Report 9577194 (Version 1)
Quarter: 2013Q4

REPORT INFORMATION
  Report Type: Spontaneous
  Country: US (occurrence: US)
  Receive Date: 20131001
  Receipt Date: 20131001
  Transmission Date: 20140711
  Serious: No
  Sender: FDA-Public Use
  Company Number: US-AMGEN-USASP2013006725

PATIENT
  Age: 64 Year
  Sex: Male
  Weight: 111.11 kg

DRUGS (9)
  1. ENBREL [Suspect]
     Indication: RHEUMATOID ARTHRITIS
     Dosage: 25 MG, 2 TIMES/WK
     Route: 058
  2. METHOTREXATE [Concomitant]
     Dosage: 2.5 MG, UNK
  3. LISINOPRIL [Concomitant]
     Dosage: 10 MG, UNK
  4. HYDROCHLOROTH [Concomitant]
     Dosage: 25 MG, UNK
  5. NEXIUM                             /01479302/ [Concomitant]
     Dosage: 40 MG, UNK
  6. POTASSIUM [Concomitant]
     Dosage: 95 MG, UNK
  7. GLUCOSAMINE/CHONDROITIN            /01625901/ [Concomitant]
     Dosage: 250-200
  8. ASPIRIN [Concomitant]
     Dosage: 81 MG, UNK
  9. FOLIC ACID [Concomitant]
     Dosage: UNK

REACTIONS (1)
  - Joint stiffness [Unknown]
